FAERS Safety Report 6527840-7 (Version None)
Quarter: 2010Q1

REPORT INFORMATION
  Report Type: 
  Country: None (occurrence: None)
  Receive Date: 20100106
  Receipt Date: 20091224
  Transmission Date: 20100710
  Serious: Yes (Hospitalization)
  Sender: FDA-Public Use
  Company Number: US-ELI_LILLY_AND_COMPANY-US200912005509

PATIENT
  Sex: Female
  Weight: 54.422 kg

DRUGS (12)
  1. PEMETREXED [Suspect]
     Indication: NON-SMALL CELL LUNG CANCER
     Dosage: 500 MG/M2, OTHER
     Route: 042
     Dates: start: 20091204, end: 20091204
  2. CARBOPLATIN [Suspect]
     Indication: NON-SMALL CELL LUNG CANCER
     Dosage: 6 D/F, OTHER
     Route: 042
     Dates: start: 20091204, end: 20091204
  3. BEVACIZUMAB [Suspect]
     Indication: NON-SMALL CELL LUNG CANCER
     Dosage: 15 MG/KG, OTHER
     Route: 042
     Dates: start: 20091204, end: 20091204
  4. CRESTOR [Concomitant]
     Indication: DYSLIPIDAEMIA
     Dates: start: 20070101
  5. BUSPAR [Concomitant]
     Indication: DEPRESSION
     Dates: start: 20060101
  6. VALTREX [Concomitant]
     Indication: PROPHYLAXIS
  7. IBUPROFEN [Concomitant]
     Indication: PAIN
     Dosage: UNK, AS NEEDED
     Dates: start: 20091101
  8. COMPAZINE [Concomitant]
     Indication: NAUSEA
     Dates: start: 20091204
  9. MIRALAX [Concomitant]
     Indication: CONSTIPATION
     Dates: start: 20091001
  10. DIFLUCAN [Concomitant]
     Indication: FUNGAL INFECTION
     Dates: start: 20091210
  11. BACTRIM DS [Concomitant]
     Indication: URINARY TRACT INFECTION
     Dates: start: 20091210, end: 20091217
  12. LORAZEPAM [Concomitant]
     Indication: NAUSEA
     Dates: start: 20091204

REACTIONS (2)
  - DEHYDRATION [None]
  - HYPOKALAEMIA [None]
